FAERS Safety Report 6330318 (Version 3)
Quarter: 2024Q1

REPORT INFORMATION
  Report Type: Spontaneous
  Country: FR (occurrence: FR)
  Receive Date: 20070611
  Receipt Date: 20240315
  Transmission Date: 20240410
  Serious: Yes (Life-Threatening, Other)
  Sender: FDA-Public Use
  Company Number: FR-AVENTIS-200711848FR

PATIENT
  Age: 68 Year
  Sex: Female
  Weight: 61 kg

DRUGS (18)
  1. LEVOFLOXACIN [Suspect]
     Active Substance: LEVOFLOXACIN
     Indication: Pneumonia
     Dosage: UNK UNK,QD
     Route: 048
     Dates: start: 20070505, end: 20070509
  2. CEFTRIAXONE SODIUM [Suspect]
     Active Substance: CEFTRIAXONE SODIUM
     Indication: Pneumonia
     Dosage: UNK UNK,QD
     Route: 030
     Dates: start: 20070505, end: 20070509
  3. AMOXICILLIN\CLAVULANATE POTASSIUM [Suspect]
     Active Substance: AMOXICILLIN\CLAVULANATE POTASSIUM
     Indication: Pneumonia
     Route: 048
     Dates: start: 20070430, end: 20070506
  4. KETEK [Suspect]
     Active Substance: TELITHROMYCIN
     Indication: Pneumonia
     Dosage: 800 MG, QD
     Route: 048
     Dates: start: 20070419, end: 20070424
  5. AMOXICILLIN SODIUM [Suspect]
     Active Substance: AMOXICILLIN SODIUM
     Indication: Pneumonia
     Dosage: UNK
     Route: 048
     Dates: start: 20070430, end: 20070506
  6. PIROXICAM BETADEX [Suspect]
     Active Substance: PIROXICAM BETADEX
     Indication: Product used for unknown indication
     Dosage: 800 MG
     Route: 048
     Dates: start: 20070403, end: 20070509
  7. NOVATREX (METHOTREXATE) [Suspect]
     Active Substance: METHOTREXATE SODIUM
     Indication: Product used for unknown indication
     Dosage: UNK UNK, QM
     Route: 048
     Dates: end: 20070509
  8. NOVATREX (METHOTREXATE) [Suspect]
     Active Substance: METHOTREXATE SODIUM
     Dosage: 3 DF
     Route: 048
  9. VALSARTAN [Concomitant]
     Active Substance: VALSARTAN
     Dosage: UNK UNK,QD,LONG TERM TREATMENT.
     Route: 048
  10. SYMBICORT [Concomitant]
     Active Substance: BUDESONIDE\FORMOTEROL FUMARATE DIHYDRATE
  11. IPRATROPIUM BROMIDE\FENOTEROL HYDROBROMIDE [Concomitant]
     Active Substance: FENOTEROL HYDROBROMIDE\IPRATROPIUM BROMIDE
     Dosage: LONG TERM TREATMENT
  12. ALPRAZOLAM [Concomitant]
     Active Substance: ALPRAZOLAM
     Dosage: LONG-TERM TREATMENT.
  13. VENLAFAXINE HYDROCHLORIDE [Concomitant]
     Active Substance: VENLAFAXINE HYDROCHLORIDE
     Dosage: LONG TERM TREATMENT.
  14. ACETAMINOPHEN\PROPOXYPHENE HYDROCHLORIDE [Concomitant]
     Active Substance: ACETAMINOPHEN\PROPOXYPHENE HYDROCHLORIDE
     Dosage: LONG TERM TREATMENT.
  15. LANSOPRAZOLE [Concomitant]
     Active Substance: LANSOPRAZOLE
     Dosage: LONG-TERM TREATMENT.
  16. PULMICORT TURBUHALER [Concomitant]
     Active Substance: BUDESONIDE
     Dosage: LONG-TERM TREATMENT.
  17. AMOXICILLIN [Concomitant]
     Active Substance: AMOXICILLIN
     Dosage: UNK UNK,QD
     Dates: start: 20070410, end: 20070417
  18. NEURONTIN [Concomitant]
     Active Substance: GABAPENTIN
     Dosage: LONG TERM TREATMENT.

REACTIONS (3)
  - Pancytopenia [Recovered/Resolved]
  - Renal failure [Recovered/Resolved]
  - Medication error [Unknown]

NARRATIVE: CASE EVENT DATE: 20070425
